FAERS Safety Report 13725873 (Version 1)
Quarter: 2017Q3

REPORT INFORMATION
  Report Type: Spontaneous
  Country: CN (occurrence: CN)
  Receive Date: 20170707
  Receipt Date: 20170707
  Transmission Date: 20171127
  Serious: Yes (Other)
  Sender: FDA-Public Use
  Company Number: CN-009507513-1706CHN011450

PATIENT

DRUGS (6)
  1. GONADOTROPIN, CHORIONIC [Suspect]
     Active Substance: CHORIOGONADOTROPIN ALFA
  2. PROGYNOVA [Concomitant]
     Active Substance: ESTRADIOL VALERATE
     Dosage: 6 MG, QD, FROM DAY 9
  3. FOLLITROPIN BETA [Suspect]
     Active Substance: FOLLITROPIN
     Indication: OVULATION INDUCTION
  4. PROGESTERONE. [Concomitant]
     Active Substance: PROGESTERONE
     Dosage: 40 MG, UNK
     Route: 030
  5. PROGYNOVA [Concomitant]
     Active Substance: ESTRADIOL VALERATE
     Dosage: 2 MG, QD FROM CYCLE DAY 3
  6. PROGYNOVA [Concomitant]
     Active Substance: ESTRADIOL VALERATE
     Dosage: 4 MG, QD, FROM DAY 6-8

REACTIONS (1)
  - Low birth weight baby [Unknown]
